FAERS Safety Report 5641041-6 (Version None)
Quarter: 2008Q1

REPORT INFORMATION
  Report Type: 
  Country: None (occurrence: None)
  Receive Date: 20080227
  Receipt Date: 20080218
  Transmission Date: 20080703
  Serious: Yes (Hospitalization)
  Sender: FDA-Public Use
  Company Number: AT-ASTRAZENECA-2008PK00146

PATIENT
  Age: 31636 Day
  Sex: Female

DRUGS (9)
  1. ATACAND [Suspect]
     Route: 048
     Dates: start: 20040101, end: 20070801
  2. ATACAND HCT [Suspect]
     Route: 048
     Dates: start: 20070801, end: 20080115
  3. ULSAL [Concomitant]
     Dosage: EVERY EVENING
     Route: 048
     Dates: start: 20040101
  4. DEANXIT [Concomitant]
  5. ASASANTIN RETARD [Concomitant]
  6. PIRABENE [Concomitant]
  7. AMITRIPTYLINE HCL [Concomitant]
  8. KALIUMCHLORID DRAGEES [Concomitant]
  9. VIVIMED [Concomitant]

REACTIONS (3)
  - ASTHENIA [None]
  - HYPOCHLORAEMIA [None]
  - HYPONATRAEMIA [None]
